FAERS Safety Report 16470397 (Version 1)
Quarter: 2019Q2

REPORT INFORMATION
  Report Type: Spontaneous
  Country: US (occurrence: US)
  Receive Date: 20190624
  Receipt Date: 20190624
  Transmission Date: 20190711
  Serious: Yes (Death, Hospitalization)
  Sender: FDA-Public Use
  Company Number: US-STEMLINE THERAPEUTICS, INC.-2019ST000045

PATIENT
  Sex: Male

DRUGS (1)
  1. ELZONRIS [Suspect]
     Active Substance: TAGRAXOFUSP-ERZS
     Indication: BLASTIC PLASMACYTOID DENDRITIC CELL NEOPLASIA
     Dosage: CYCLE 1
     Route: 042
     Dates: start: 20190605, end: 20190607

REACTIONS (12)
  - Epistaxis [Unknown]
  - Aspartate aminotransferase increased [Not Recovered/Not Resolved]
  - Hypoxia [Not Recovered/Not Resolved]
  - Dyspnoea [Not Recovered/Not Resolved]
  - Renal failure [Fatal]
  - Capillary leak syndrome [Unknown]
  - Alanine aminotransferase increased [Not Recovered/Not Resolved]
  - Haemoptysis [Unknown]
  - Blood albumin decreased [Unknown]
  - Blood bilirubin increased [Not Recovered/Not Resolved]
  - Sepsis [Fatal]
  - International normalised ratio increased [Unknown]
